FAERS Safety Report 6289006-8 (Version None)
Quarter: 2009Q3

REPORT INFORMATION
  Report Type: 
  Country: None (occurrence: None)
  Receive Date: 20090729
  Receipt Date: 20090716
  Transmission Date: 20100115
  Serious: Yes (Other)
  Sender: FDA-Public Use
  Company Number: PHHY2009CA18909

PATIENT
  Sex: Female

DRUGS (11)
  1. ACLASTA [Suspect]
     Indication: OSTEOPOROSIS
     Dosage: 5 MG/100 ML PER YEAR
     Route: 042
     Dates: start: 20090513, end: 20090513
  2. CALCIUM [Concomitant]
     Dosage: 1500 MG PER DAY
  3. VITAMIN D [Concomitant]
     Dosage: 1000 IU/DAY
  4. TYLENOL (CAPLET) [Concomitant]
  5. ATIVAN [Concomitant]
     Dosage: 0.5 MG, QHS
  6. ASPIRIN [Concomitant]
     Dosage: 81 MG, QD
  7. SLOW-K [Concomitant]
  8. FENTANYL [Concomitant]
     Dosage: (UNKNOWN DOSE) ONCE IN EVERY 3 DAYS
  9. ASCORBIC ACID [Concomitant]
  10. ANTIHYPERTENSIVES [Concomitant]
     Indication: HYPERTENSION
  11. LYRICA [Concomitant]
     Dosage: 75 MG, BID

REACTIONS (9)
  - COUGH [None]
  - DIARRHOEA [None]
  - HYPERHIDROSIS [None]
  - HYPERSOMNIA [None]
  - HYPOTENSION [None]
  - NASOPHARYNGITIS [None]
  - OEDEMA PERIPHERAL [None]
  - PNEUMONIA [None]
  - WHEEZING [None]
